FAERS Safety Report 4640636-6 (Version None)
Quarter: 2005Q2

REPORT INFORMATION
  Report Type: 
  Country: None (occurrence: None)
  Receive Date: 20050419
  Receipt Date: 20050406
  Transmission Date: 20051028
  Serious: Yes (Other)
  Sender: FDA-Public Use
  Company Number: 2005055668

PATIENT
  Sex: Male

DRUGS (3)
  1. CAMPTOSAR (IRINIOTECAN HYDROCHLORIDE) [Suspect]
     Indication: COLON CANCER
     Dosage: 80 MG/M2, ONCE A WEEK FOR FOUR WEEKS, INTRAVENOUS
     Route: 042
     Dates: start: 20050201
  2. FLUOROURACIL [Concomitant]
  3. LEUCOVORIN CALCIUM [Concomitant]

REACTIONS (3)
  - LIBIDO INCREASED [None]
  - PAIN [None]
  - PRIAPISM [None]
